FAERS Safety Report 19701697 (Version 13)
Quarter: 2022Q1

REPORT INFORMATION
  Report Type: Report from Study
  Country: BE (occurrence: None)
  Receive Date: 20210813
  Receipt Date: 20220215
  Transmission Date: 20220423
  Serious: Yes (Hospitalization)
  Sender: FDA-Public Use
  Company Number: BE-ROCHE-2855873

PATIENT
  Age: 74 Year
  Sex: Female
  Weight: 64.2 kg

DRUGS (13)
  1. RO-7296682 [Suspect]
     Active Substance: RO-7296682
     Indication: Neoplasm
     Dosage: ON 07/JUN/2021 FROM 3:53 PM TO 7:50 PM, SHE RECEIVED MOST RECENT DOSE OF RO7296682 (CD25 MAB) PRIOR
     Route: 042
     Dates: start: 20210607
  2. ATEZOLIZUMAB [Suspect]
     Active Substance: ATEZOLIZUMAB
     Indication: Neoplasm
     Dosage: ON 07/JUN/2021 FROM 12:45 PM TO 1:49 PM, SHE RECEIVED MOST RECENT DOSE OF  ATEZOLIZUMAB PRIOR TO AE/
     Route: 042
     Dates: start: 20210607
  3. BISOPROLOL [Concomitant]
     Active Substance: BISOPROLOL
     Indication: Hypertension
     Route: 048
  4. PANTOPRAZOLE [Concomitant]
     Active Substance: PANTOPRAZOLE
     Indication: Gastrooesophageal reflux disease
     Route: 048
  5. LYRICA [Concomitant]
     Active Substance: PREGABALIN
     Indication: Peripheral sensory neuropathy
     Route: 048
  6. ZOLPIDEM [Concomitant]
     Active Substance: ZOLPIDEM TARTRATE
     Indication: Insomnia
     Route: 048
  7. AZELASTINE [Concomitant]
     Active Substance: AZELASTINE
     Indication: Lacrimation increased
     Dosage: 1 UNKNOWN
     Route: 031
     Dates: start: 20210607
  8. ACETAMINOPHEN [Concomitant]
     Active Substance: ACETAMINOPHEN
     Indication: Headache
     Route: 048
     Dates: start: 20210621
  9. CEFUROXIME [Concomitant]
     Active Substance: CEFUROXIME
     Indication: Urinary tract infection
     Route: 048
     Dates: start: 20210622, end: 20210627
  10. ASPIRIN [Concomitant]
     Active Substance: ASPIRIN
     Indication: Transient ischaemic attack
     Route: 048
     Dates: start: 20210623
  11. BEFACT FORTE [Concomitant]
     Indication: Polyneuropathy
     Dosage: 1 U
     Route: 048
  12. CLOBETASOL PROPIONATE [Concomitant]
     Active Substance: CLOBETASOL PROPIONATE
     Indication: Rash
     Dosage: 1 OTHER
     Route: 061
     Dates: start: 20210715, end: 20210719
  13. CLOBETASOL PROPIONATE [Concomitant]
     Active Substance: CLOBETASOL PROPIONATE
     Dosage: 1 OTHER
     Route: 061
     Dates: start: 20210720, end: 20210730

REACTIONS (2)
  - Immune system disorder [Not Recovered/Not Resolved]
  - Confusional state [Recovered/Resolved]

NARRATIVE: CASE EVENT DATE: 20210618
